FAERS Safety Report 11201611 (Version 1)
Quarter: 2015Q2

REPORT INFORMATION
  Report Type: Spontaneous
  Country: US (occurrence: None)
  Receive Date: 20150617
  Receipt Date: 20150617
  Transmission Date: 20150821
  Serious: No
  Sender: FDA-Public Use
  Company Number: US-LHC-2015072

PATIENT

DRUGS (1)
  1. OXYGEN. [Suspect]
     Active Substance: OXYGEN
     Indication: CROHN^S DISEASE
     Route: 055

REACTIONS (3)
  - Anxiety [None]
  - Off label use [None]
  - Therapy cessation [None]
